FAERS Safety Report 6313721-0 (Version None)
Quarter: 2009Q3

REPORT INFORMATION
  Report Type: 
  Country: None (occurrence: None)
  Receive Date: 20090818
  Receipt Date: 20081223
  Transmission Date: 20100115
  Serious: No
  Sender: FDA-Public Use
  Company Number: US-BRISTOL-MYERS SQUIBB COMPANY-14453914

PATIENT
  Age: 59 Year
  Sex: Male
  Weight: 66 kg

DRUGS (1)
  1. ZERIT [Suspect]
     Indication: HIV INFECTION

REACTIONS (2)
  - BLOOD CHOLESTEROL INCREASED [None]
  - SKIN WRINKLING [None]
